FAERS Safety Report 7236779-3 (Version None)
Quarter: 2011Q1

REPORT INFORMATION
  Report Type: 
  Country: None (occurrence: None)
  Receive Date: 20110120
  Receipt Date: 20110105
  Transmission Date: 20110831
  Serious: Yes (Other)
  Sender: FDA-Public Use
  Company Number: US-BIOGENIDEC-2010BI028478

PATIENT
  Age: 57 Year
  Sex: Female

DRUGS (2)
  1. AVONEX [Suspect]
     Indication: MULTIPLE SCLEROSIS
     Route: 030
     Dates: start: 19971101, end: 20030801
  2. AVONEX [Suspect]
     Route: 030
     Dates: start: 20030801

REACTIONS (14)
  - FATIGUE [None]
  - MUSCLE SPASTICITY [None]
  - INJECTION SITE PAIN [None]
  - MEMORY IMPAIRMENT [None]
  - MUSCLE TIGHTNESS [None]
  - DYSGRAPHIA [None]
  - BONE PAIN [None]
  - INSOMNIA [None]
  - MUSCLE SPASMS [None]
  - DIABETES MELLITUS [None]
  - ARTHRALGIA [None]
  - URTICARIA [None]
  - PLATELET COUNT DECREASED [None]
  - MULTIPLE MYELOMA [None]
